FAERS Safety Report 7973035-X (Version None)
Quarter: 2011Q4

REPORT INFORMATION
  Report Type: 
  Country: None (occurrence: None)
  Receive Date: 20111213
  Receipt Date: 20111206
  Transmission Date: 20120403
  Serious: Yes (Hospitalization)
  Sender: FDA-Public Use
  Company Number: AU-AMGEN-AUSSP2011065526

PATIENT
  Age: 61 Year
  Sex: Female
  Weight: 61 kg

DRUGS (5)
  1. EPIRUBICIN HYDROCHLORIDE [Suspect]
     Dosage: UNK
     Dates: start: 20110623, end: 20110714
  2. VALPROATE SODIUM [Concomitant]
  3. CYCLOPHOSPHAMIDE [Suspect]
     Dosage: UNK
     Dates: start: 20110623, end: 20110714
  4. NEUPOGEN [Suspect]
     Indication: CHEMOTHERAPY
     Dosage: UNK
     Dates: start: 20110623, end: 20110714
  5. LAMICTAL [Concomitant]

REACTIONS (2)
  - CONDITION AGGRAVATED [None]
  - CONVULSION [None]
